FAERS Safety Report 19460296 (Version 2)
Quarter: 2021Q2

REPORT INFORMATION
  Report Type: Spontaneous
  Country: NL (occurrence: NL)
  Receive Date: 20210625
  Receipt Date: 20210630
  Transmission Date: 20210717
  Serious: Yes (Hospitalization)
  Sender: FDA-Public Use
  Company Number: NL-TEVA-2021-NL-1925154

PATIENT
  Age: 63 Year
  Sex: Male
  Weight: 90 kg

DRUGS (9)
  1. SIMVASTATINE TABLET FO 40MG / BRAND NAME NOT SPECIFIED [Concomitant]
     Active Substance: SIMVASTATIN
     Indication: PRODUCT USED FOR UNKNOWN INDICATION
     Dosage: 1 DOSAGE FORMS DAILY; 1 X PER DAY 1 PIECE:THERAPY END DATE :ASKU
     Dates: start: 2014
  2. CLOPIDOGREL TABLET   75MG / BRAND NAME NOT SPECIFIED [Concomitant]
     Active Substance: CLOPIDOGREL BISULFATE
     Indication: PRODUCT USED FOR UNKNOWN INDICATION
     Dosage: 1 DOSAGE FORMS DAILY; 1 X PER DAY 1 PIECETHERAPY END DATE :ASKU
     Dates: start: 2014
  3. PANTOPRAZOL TABLET MSR 40MG / BRAND NAME NOT SPECIFIED [Concomitant]
     Active Substance: PANTOPRAZOLE
     Indication: PRODUCT USED FOR UNKNOWN INDICATION
     Dosage: 1 DOSAGE FORMS DAILY; 1 X PER DAY 1 PIECETHERAPY END DATE :ASKU
     Dates: start: 2014
  4. HYDROCORTISON?ACETAAT CREME 10MG/G / BRAND NAME NOT SPECIFIED [Concomitant]
     Active Substance: HYDROCORTISONE ACETATE
     Dosage: APPLY 1 TO 2 TIMES A DAY,THERAPY START DATE:ASKU, THERAPY END DATE:ASKU
  5. HYDROXYCHLOROQUINE TABLET OMHULD 200MG / PLAQUENIL TABLET OMHULD 200MG [Concomitant]
     Indication: PRODUCT USED FOR UNKNOWN INDICATION
     Dosage: 2 DOSAGE FORMS DAILY; 2X A DAY 1 PIECE THERAPY END DATE :ASKU
     Dates: start: 2014
  6. PARACETAMOL TABLET  500MG / BRAND NAME NOT SPECIFIED [Concomitant]
     Dosage: 500 MG (MILLIGRAM)THERAPY START DATE :THERAPY END DATE:ASKU
  7. AMLODIPINE [Suspect]
     Active Substance: AMLODIPINE BESYLATE
     Indication: ESSENTIAL HYPERTENSION
     Dosage: 1 DOSAGE FORMS DAILY; 1 X PER DAY 1 PIECE
     Dates: start: 2014, end: 20210507
  8. VENLAFAXINE CAPSULE MGA  75MG / BRAND NAME NOT SPECIFIED [Concomitant]
     Active Substance: VENLAFAXINE HYDROCHLORIDE
     Indication: PRODUCT USED FOR UNKNOWN INDICATION
     Dosage: 1 DOSAGE FORMS DAILY; 1 X PER DAY 1 PIECETHERAPY END DATE :ASKU
     Dates: start: 2014
  9. IRBESARTAN/HYDROCHLOORTHIAZIDE TABLET 150/12,5MG / COAPROVEL TABLET FI [Suspect]
     Active Substance: HYDROCHLOROTHIAZIDE\IRBESARTAN
     Indication: ESSENTIAL HYPERTENSION
     Dosage: 1 DOSAGE FORMS DAILY; 1 X PER DAY 1 PIECE?IRBESARTAN/HYDROCHLOORTHIAZIDE TABLET 150/12,5MG / COAPROV
     Dates: start: 2014, end: 20210507

REACTIONS (2)
  - Chills [Recovered/Resolved]
  - Pyrexia [Recovered/Resolved]

NARRATIVE: CASE EVENT DATE: 20210421
